FAERS Safety Report 13022206 (Version 2)
Quarter: 2017Q1

REPORT INFORMATION
  Report Type: Spontaneous
  Country: US (occurrence: US)
  Receive Date: 20161213
  Receipt Date: 20170208
  Transmission Date: 20170428
  Serious: Yes (Hospitalization)
  Sender: FDA-Public Use
  Company Number: US-PFIZER INC-2016565868

PATIENT
  Age: 70 Year
  Sex: Female

DRUGS (6)
  1. BUPRENORPHINE HYDROCHLORIDE/NALOXONE HYDROCHLORIDE [Concomitant]
     Dosage: 1 PER DAY
     Route: 060
  2. LYRICA [Suspect]
     Active Substance: PREGABALIN
     Indication: BURNING SENSATION
     Dosage: UNK, 75-150, 100
  3. GABAPENTIN. [Concomitant]
     Active Substance: GABAPENTIN
     Dosage: 1200 MG DAILY
  4. LYRICA [Suspect]
     Active Substance: PREGABALIN
     Indication: PAIN
     Dosage: UNK
  5. ZYDONE [Concomitant]
     Active Substance: ACETAMINOPHEN\HYDROCODONE BITARTRATE
     Indication: PAIN
     Dosage: 8 TIMES A DAY
  6. NORCO [Concomitant]
     Active Substance: ACETAMINOPHEN\HYDROCODONE BITARTRATE
     Indication: PAIN
     Dosage: 3X/DAY (HYDROCODONE BITARTRATE, PARACETAMOL 7.5-3.25)

REACTIONS (7)
  - Chest pain [Unknown]
  - Drug ineffective [Not Recovered/Not Resolved]
  - Agitation [Unknown]
  - Infection [Not Recovered/Not Resolved]
  - Nail injury [Unknown]
  - Pain in extremity [Unknown]
  - Complex regional pain syndrome [Unknown]
